FAERS Safety Report 16564767 (Version 1)
Quarter: 2019Q3

REPORT INFORMATION
  Report Type: Spontaneous
  Country: US (occurrence: US)
  Receive Date: 20190711
  Receipt Date: 20190711
  Transmission Date: 20191004
  Serious: Yes (Other)
  Sender: FDA-Public Use
  Company Number: None

PATIENT
  Age: 72 Year
  Sex: Male
  Weight: 123.97 kg

DRUGS (18)
  1. OXYCODONE [Concomitant]
     Active Substance: OXYCODONE
  2. PREDNISONE. [Concomitant]
     Active Substance: PREDNISONE
  3. CAPECITABINE. [Suspect]
     Active Substance: CAPECITABINE
     Indication: PANCREATIC CARCINOMA
     Route: 048
     Dates: start: 20170714, end: 20190711
  4. NOVOLOG [Concomitant]
     Active Substance: INSULIN ASPART
  5. ONDANSETRON [Concomitant]
     Active Substance: ONDANSETRON
  6. TRAMADOL. [Concomitant]
     Active Substance: TRAMADOL
  7. XARELTO [Concomitant]
     Active Substance: RIVAROXABAN
  8. QUESTRAN [Concomitant]
     Active Substance: CHOLESTYRAMINE
  9. LEVEMIR [Concomitant]
     Active Substance: INSULIN DETEMIR
  10. TRIAMCINOLONE [Concomitant]
     Active Substance: TRIAMCINOLONE
  11. BENADRYL [Concomitant]
     Active Substance: DIPHENHYDRAMINE HYDROCHLORIDE
  12. ATORVASTATIN [Concomitant]
     Active Substance: ATORVASTATIN
  13. LISINOPRIL. [Concomitant]
     Active Substance: LISINOPRIL
  14. PROCHLORPERAZINE. [Concomitant]
     Active Substance: PROCHLORPERAZINE
  15. RANITIDINE. [Concomitant]
     Active Substance: RANITIDINE
  16. LOMOTIL [Concomitant]
     Active Substance: ATROPINE SULFATE\DIPHENOXYLATE HYDROCHLORIDE
  17. DRONABINOL. [Concomitant]
     Active Substance: DRONABINOL
  18. LYRICA [Concomitant]
     Active Substance: PREGABALIN

REACTIONS (3)
  - Dizziness [None]
  - Hypotension [None]
  - Fatigue [None]

NARRATIVE: CASE EVENT DATE: 20190711
